FAERS Safety Report 8026417-4 (Version None)
Quarter: 2012Q1

REPORT INFORMATION
  Report Type: 
  Country: None (occurrence: None)
  Receive Date: 20120105
  Receipt Date: 20111227
  Transmission Date: 20120608
  Serious: Yes (Other)
  Sender: FDA-Public Use
  Company Number: JP-MERCK-1111USA01684

PATIENT
  Age: 62 Year
  Sex: Female

DRUGS (5)
  1. FOSAMAX [Suspect]
     Indication: OSTEOPOROSIS
     Route: 048
     Dates: start: 20070105, end: 20090905
  2. NORVASC [Concomitant]
     Route: 048
  3. LOXONIN [Concomitant]
     Route: 048
  4. CYANOCOBALAMIN [Concomitant]
     Route: 048
  5. HALCION [Concomitant]
     Indication: ARTHRALGIA
     Route: 048

REACTIONS (1)
  - OSTEOMYELITIS [None]
